FAERS Safety Report 5684999-1 (Version None)
Quarter: 2008Q1

REPORT INFORMATION
  Report Type: 
  Country: None (occurrence: None)
  Receive Date: 20080328
  Receipt Date: 19970325
  Transmission Date: 20080703
  Serious: Yes (Death, Hospitalization)
  Sender: FDA-Public Use
  Company Number: CM-ROCHE-80070

PATIENT
  Age: 44 Year
  Sex: Female

DRUGS (1)
  1. FANSIDAR [Suspect]
     Indication: MALARIA
     Route: 030
     Dates: start: 19960828, end: 19960828

REACTIONS (6)
  - DEATH [None]
  - DELIRIUM [None]
  - DIZZINESS [None]
  - FATIGUE [None]
  - HYPERHIDROSIS [None]
  - URINARY INCONTINENCE [None]
